FAERS Safety Report 6056403-5 (Version None)
Quarter: 2009Q1

REPORT INFORMATION
  Report Type: 
  Country: None (occurrence: None)
  Receive Date: 20090129
  Receipt Date: 20090121
  Transmission Date: 20090719
  Serious: Yes (Other)
  Sender: FDA-Public Use
  Company Number: DE-BAYER-200830764GPV

PATIENT
  Sex: Female
  Weight: 78 kg

DRUGS (1)
  1. YASMIN [Suspect]
     Indication: DRUG USE FOR UNKNOWN INDICATION

REACTIONS (2)
  - ABORTION MISSED [None]
  - PREGNANCY [None]
